FAERS Safety Report 13822167 (Version 1)
Quarter: 2017Q3

REPORT INFORMATION
  Report Type: Spontaneous
  Country: US (occurrence: US)
  Receive Date: 20170801
  Receipt Date: 20170801
  Transmission Date: 20171127
  Serious: No
  Sender: FDA-Public Use
  Company Number: None

PATIENT
  Age: 67 Year
  Sex: Female
  Weight: 61.29 kg

DRUGS (9)
  1. VINEGAR PILL [Concomitant]
  2. MULTI VIT. [Concomitant]
  3. COQ10 [Concomitant]
     Active Substance: UBIDECARENONE
  4. HAIR SKIN + NAILS [Concomitant]
  5. VITAMIN D [Concomitant]
     Active Substance: CHOLECALCIFEROL
  6. HTZ [Concomitant]
  7. PROLIA [Suspect]
     Active Substance: DENOSUMAB
     Indication: OSTEOPOROSIS
     Dosage: 1 SHOT EVERY 6 MONTHS
     Dates: start: 20170626, end: 20170626
  8. MOTRIN [Concomitant]
     Active Substance: IBUPROFEN
  9. SYNTHROID [Concomitant]
     Active Substance: LEVOTHYROXINE SODIUM

REACTIONS (7)
  - Pain in extremity [None]
  - Rheumatoid arthritis [None]
  - Feeling cold [None]
  - Feeling abnormal [None]
  - Burning sensation [None]
  - Nausea [None]
  - Musculoskeletal pain [None]

NARRATIVE: CASE EVENT DATE: 20170630
